FAERS Safety Report 4456895-9 (Version None)
Quarter: 2004Q3

REPORT INFORMATION
  Report Type: 
  Country: None (occurrence: None)
  Receive Date: 20040921
  Receipt Date: 20040906
  Transmission Date: 20050211
  Serious: Yes (Other)
  Sender: FDA-Public Use
  Company Number: 2004-DE-03742DE

PATIENT
  Age: 30 Year
  Sex: Male

DRUGS (4)
  1. VIRAMUNE [Suspect]
     Indication: HIV INFECTION
     Dates: start: 20000714, end: 20021101
  2. ZERIT [Concomitant]
  3. PEGINTRON (NR) [Concomitant]
  4. REBETOL (RIBAVIRIN) (NR) [Concomitant]

REACTIONS (1)
  - HEPATITIS C [None]
